FAERS Safety Report 15452332 (Version 1)
Quarter: 2018Q4

REPORT INFORMATION
  Report Type: Spontaneous
  Country: US (occurrence: US)
  Receive Date: 20181001
  Receipt Date: 20181001
  Transmission Date: 20190204
  Serious: Yes (Hospitalization, Other)
  Sender: FDA-Public Use
  Company Number: US-JUBILANT CADISTA PHARMACEUTICALS-2018JUB00385

PATIENT
  Age: 39 Year
  Sex: Female
  Weight: 75.3 kg

DRUGS (3)
  1. PREDNISONE. [Suspect]
     Active Substance: PREDNISONE
     Indication: ACUTE GRAFT VERSUS HOST DISEASE
     Dosage: 50 MG, 2X/DAY
     Route: 048
     Dates: start: 20180806
  2. INCB039110 OR PLACEBO [Suspect]
     Active Substance: ITACITINIB
     Indication: ACUTE GRAFT VERSUS HOST DISEASE
     Dosage: 100 MG, 1X/DAY
     Route: 048
     Dates: start: 20180621
  3. ELIQUIS [Concomitant]
     Active Substance: APIXABAN

REACTIONS (10)
  - Urinary tract infection bacterial [Recovering/Resolving]
  - Headache [Unknown]
  - Enterococcal bacteraemia [Recovering/Resolving]
  - Haematoma [Unknown]
  - Arthralgia [Unknown]
  - Insomnia [Unknown]
  - Peripheral swelling [Unknown]
  - Oedema [Unknown]
  - Ecchymosis [Unknown]
  - Pain in extremity [Not Recovered/Not Resolved]

NARRATIVE: CASE EVENT DATE: 201808
